FAERS Safety Report 5456508-3 (Version None)
Quarter: 2007Q3

REPORT INFORMATION
  Report Type: 
  Country: None (occurrence: None)
  Receive Date: 20070918
  Receipt Date: 20070330
  Transmission Date: 20080115
  Serious: Yes (Hospitalization)
  Sender: FDA-Public Use
  Company Number: US-ASTRAZENECA-2006UW25282

PATIENT
  Sex: Male
  Weight: 136.4 kg

DRUGS (4)
  1. SEROQUEL [Suspect]
     Indication: DEPRESSION
     Route: 048
     Dates: start: 20010101, end: 20060101
  2. SEROQUEL [Suspect]
     Indication: ANXIETY
     Route: 048
     Dates: start: 20010101, end: 20060101
  3. WELLBUTRIN [Concomitant]
  4. EFFEXSUR [Concomitant]

REACTIONS (4)
  - ANGINA PECTORIS [None]
  - ANXIETY [None]
  - DIABETES MELLITUS [None]
  - HYPERGLYCAEMIA [None]
